FAERS Safety Report 25574164 (Version 2)
Quarter: 2025Q3

REPORT INFORMATION
  Report Type: Report from Study
  Country: EU (occurrence: EU)
  Receive Date: 20250717
  Receipt Date: 20250718
  Transmission Date: 20251020
  Serious: Yes (Death, Hospitalization, Other)
  Sender: ABBVIE
  Company Number: EU-ABBVIE-6367377

PATIENT
  Age: 71 Year
  Sex: Male
  Weight: 65 kg

DRUGS (1)
  1. EPCORITAMAB [Suspect]
     Active Substance: EPCORITAMAB
     Indication: Lymphoma
     Route: 058
     Dates: start: 20250606, end: 20250606

REACTIONS (4)
  - Septic shock [Fatal]
  - Hypotension [Fatal]
  - Fatigue [Fatal]
  - Pyrexia [Fatal]

NARRATIVE: CASE EVENT DATE: 20250609
